FAERS Safety Report 8252800-8 (Version None)
Quarter: 2012Q2

REPORT INFORMATION
  Report Type: 
  Country: None (occurrence: None)
  Receive Date: 20120402
  Receipt Date: 20111220
  Transmission Date: 20120825
  Serious: No
  Sender: FDA-Public Use
  Company Number: US-ABBOTT-11P-163-0886131-00

PATIENT
  Sex: Male
  Weight: 76.272 kg

DRUGS (5)
  1. NEURONTIN [Concomitant]
     Indication: INTERVERTEBRAL DISC DISORDER
  2. ULTRAM [Concomitant]
     Indication: BACK PAIN
  3. LORAZEPAM [Concomitant]
     Indication: INSOMNIA
  4. HYDROCODONE BITARTRATE [Concomitant]
     Indication: BACK PAIN
  5. ANDROGEL [Suspect]
     Indication: BLOOD TESTOSTERONE DECREASED
     Dates: start: 20111101

REACTIONS (2)
  - ERECTILE DYSFUNCTION [None]
  - FATIGUE [None]
